FAERS Safety Report 14709016 (Version 1)
Quarter: 2018Q2

REPORT INFORMATION
  Report Type: Spontaneous
  Country: BR (occurrence: BR)
  Receive Date: 20180403
  Receipt Date: 20180403
  Transmission Date: 20180711
  Serious: Yes (Other)
  Sender: FDA-Public Use
  Company Number: BR-ELI_LILLY_AND_COMPANY-BR201803005303

PATIENT
  Age: 37 Year
  Sex: Female

DRUGS (3)
  1. HUMALOG [Suspect]
     Active Substance: INSULIN LISPRO
     Dosage: 8 IU, TID
     Route: 065
     Dates: start: 201703
  2. HUMALOG [Suspect]
     Active Substance: INSULIN LISPRO
     Indication: GESTATIONAL DIABETES
     Dosage: UNK, UNKNOWN
     Route: 065
     Dates: start: 2012
  3. UTROGESTAN [Concomitant]
     Active Substance: PROGESTERONE
     Dosage: 1 DF, DAILY

REACTIONS (2)
  - Maternal exposure timing unspecified [Unknown]
  - Placenta praevia [Unknown]

NARRATIVE: CASE EVENT DATE: 20180312
